FAERS Safety Report 9227269 (Version 1)
Quarter: 2013Q2

REPORT INFORMATION
  Report Type: Spontaneous
  Country: DE (occurrence: None)
  Receive Date: 20130410
  Receipt Date: 20130410
  Transmission Date: 20140414
  Serious: Yes (Death, Life-Threatening)
  Sender: FDA-Public Use
  Company Number: FK201301052

PATIENT
  Age: 47 Year
  Sex: Male

DRUGS (3)
  1. HEPARIN SODIUM [Suspect]
     Indication: ANTICOAGULANT THERAPY
  2. ACETYLSALICYLIC ACID (ACETYLSALICYLIC ACID) [Concomitant]
  3. WARFARIN (WARFARIN) [Concomitant]

REACTIONS (14)
  - Multi-organ failure [None]
  - Sepsis [None]
  - Ventricular fibrillation [None]
  - Right ventricular failure [None]
  - Pleural effusion [None]
  - Ischaemia [None]
  - Lower gastrointestinal haemorrhage [None]
  - Haemorrhage [None]
  - Atrial thrombosis [None]
  - Vena cava thrombosis [None]
  - Heparin-induced thrombocytopenia [None]
  - Post procedural complication [None]
  - Treatment failure [None]
  - Blood lactate dehydrogenase increased [None]
